FAERS Safety Report 16229879 (Version 1)
Quarter: 2019Q2

REPORT INFORMATION
  Report Type: Spontaneous
  Country: US (occurrence: US)
  Receive Date: 20190423
  Receipt Date: 20190423
  Transmission Date: 20190711
  Serious: No
  Sender: FDA-Public Use
  Company Number: US-DERMIRA, INC.-US-2019DER000124

PATIENT

DRUGS (1)
  1. QBREXZA [Suspect]
     Active Substance: GLYCOPYRRONIUM TOSYLATE
     Indication: HYPERHIDROSIS
     Dosage: UNK, QD
     Route: 061
     Dates: end: 2019

REACTIONS (7)
  - Urinary retention [Recovered/Resolved]
  - Dry throat [Recovered/Resolved]
  - Hypohidrosis [Recovered/Resolved]
  - Swelling [Recovered/Resolved]
  - Dry eye [Recovered/Resolved]
  - Urinary hesitation [Recovered/Resolved]
  - Heat stroke [Recovered/Resolved]

NARRATIVE: CASE EVENT DATE: 201902
